FAERS Safety Report 9280481 (Version 2)
Quarter: 2013Q2

REPORT INFORMATION
  Report Type: Spontaneous
  Country: US (occurrence: US)
  Receive Date: 20130509
  Receipt Date: 20130517
  Transmission Date: 20140414
  Serious: No
  Sender: FDA-Public Use
  Company Number: US-BAYER-2013-057608

PATIENT
  Age: 31 Year
  Sex: Female

DRUGS (2)
  1. MIRENA [Suspect]
     Indication: MENORRHAGIA
     Dosage: 20 MCG/24HR, CONT
     Route: 015
     Dates: start: 20081214, end: 20130412
  2. MIRENA [Suspect]
     Indication: ENDOMETRIAL NEOPLASM
     Dosage: 20 MCG/24HR, CONT
     Route: 015
     Dates: start: 20130412

REACTIONS (2)
  - Device expulsion [None]
  - Off label use [None]
